FAERS Safety Report 24686146 (Version 1)
Quarter: 2024Q4

REPORT INFORMATION
  Report Type: Spontaneous
  Country: US (occurrence: None)
  Receive Date: 20241202
  Receipt Date: 20241202
  Transmission Date: 20250115
  Serious: Yes (Other)
  Sender: Public
  Company Number: None

PATIENT
  Sex: Female

DRUGS (11)
  1. NUCALA [Suspect]
     Active Substance: MEPOLIZUMAB
     Indication: Asthma
     Dosage: FREQUENCY : MONTHLY;?
     Route: 058
     Dates: start: 20160331
  2. ALBUTEROL NEB 1.25MG/3 [Concomitant]
  3. CARDIZEM CD CAP 120MG/24 [Concomitant]
  4. DIGOXIN INJ 0.25/ML [Concomitant]
  5. GABAPENTIN CAP 400MG [Concomitant]
  6. METFORMIN [Concomitant]
     Active Substance: METFORMIN HYDROCHLORIDE
  7. MULTIVITAMIN TAB ADLT 50+ [Concomitant]
  8. PANTOPRAZOLE TAB 40MG [Concomitant]
  9. SINGULAIR [Concomitant]
     Active Substance: MONTELUKAST SODIUM
  10. TRELEGY AER 100MCG [Concomitant]
  11. XARELTO [Concomitant]

REACTIONS (2)
  - Limb operation [None]
  - Arterial disorder [None]
